FAERS Safety Report 8875695 (Version 1)
Quarter: 2012Q4

REPORT INFORMATION
  Report Type: 
  Country: CA (occurrence: CA)
  Receive Date: 20121023
  Receipt Date: 20121023
  Transmission Date: 20130627
  Serious: Yes (Hospitalization)
  Sender: FDA-Public Use
  Company Number: PHHY2012CA092752

PATIENT
  Sex: Male

DRUGS (4)
  1. CLOZARIL [Suspect]
     Indication: ABNORMAL BEHAVIOUR
     Dates: start: 20090925
  2. CLOZARIL [Suspect]
     Dosage: 25 mg, Daily
     Route: 048
  3. CLOZARIL [Suspect]
     Dosage: 37.5 mg, Daily
  4. SINEMET [Concomitant]

REACTIONS (15)
  - Cervical myelopathy [Unknown]
  - Demyelinating polyneuropathy [Recovering/Resolving]
  - Axonal neuropathy [Recovering/Resolving]
  - Neuropathy peripheral [Recovering/Resolving]
  - Lewis-Sumner syndrome [Recovering/Resolving]
  - Amyloidosis [Unknown]
  - Lymphocytic infiltration [Unknown]
  - Facial paresis [Unknown]
  - Cervical spinal stenosis [Unknown]
  - Sensory disturbance [Unknown]
  - Hallucination, tactile [Unknown]
  - Hallucination [Unknown]
  - Muscular weakness [Unknown]
  - Asthenia [Unknown]
  - Haemoglobin decreased [Unknown]
